FAERS Safety Report 23045337 (Version 1)
Quarter: 2023Q4

REPORT INFORMATION
  Report Type: Spontaneous
  Country: US (occurrence: US)
  Receive Date: 20231009
  Receipt Date: 20231009
  Transmission Date: 20240109
  Serious: Yes (Other)
  Sender: FDA-Public Use
  Company Number: US-009507513-2310USA001064

PATIENT
  Age: 6 Year
  Sex: Male

DRUGS (4)
  1. PRIMAXIN IV [Suspect]
     Active Substance: CILASTATIN SODIUM\IMIPENEM
     Dosage: UNK
     Dates: start: 202306
  2. AZITHROMYCIN [Suspect]
     Active Substance: AZITHROMYCIN
     Dosage: UNK
     Dates: start: 202306
  3. CEFOXITIN [Suspect]
     Active Substance: CEFOXITIN SODIUM
     Dosage: UNK
     Dates: start: 202306
  4. AMIKACIN [Suspect]
     Active Substance: AMIKACIN
     Dosage: UNK
     Dates: start: 202306, end: 2023

REACTIONS (5)
  - Small intestinal resection [Unknown]
  - Gastrointestinal tube insertion [Unknown]
  - Acute kidney injury [Unknown]
  - Blood culture positive [Unknown]
  - Drug ineffective [Unknown]

NARRATIVE: CASE EVENT DATE: 20230101
